FAERS Safety Report 4512365-0 (Version None)
Quarter: 2004Q4

REPORT INFORMATION
  Report Type: 
  Country: None (occurrence: None)
  Receive Date: 20041123
  Receipt Date: 20041112
  Transmission Date: 20050328
  Serious: Yes (Other)
  Sender: FDA-Public Use
  Company Number: A-CH2004-07584

PATIENT
  Age: 64 Year
  Sex: Male
  Weight: 116 kg

DRUGS (7)
  1. TRACLEER [Suspect]
     Indication: PULMONARY HYPERTENSION
     Dosage: SEE IMAGE
     Route: 048
     Dates: start: 20040724, end: 20040808
  2. TRACLEER [Suspect]
     Indication: PULMONARY HYPERTENSION
     Dosage: SEE IMAGE
     Route: 048
     Dates: start: 20040809, end: 20040811
  3. TRACLEER [Suspect]
     Indication: PULMONARY HYPERTENSION
     Dosage: SEE IMAGE
     Route: 048
     Dates: start: 20040812, end: 20040914
  4. TRACLEER [Suspect]
     Indication: PULMONARY HYPERTENSION
     Dosage: SEE IMAGE
     Route: 048
     Dates: start: 20041004
  5. NARCARICIN (BENZBROMARONE) [Concomitant]
  6. TORSEMIDE [Concomitant]
  7. AQUAPHOR (MINERAL OIL LIGHT, PARAFFIN, PETROLATUM, WOOL ALCOHOLS) [Concomitant]

REACTIONS (3)
  - DIZZINESS [None]
  - HEADACHE [None]
  - INSOMNIA [None]
